FAERS Safety Report 7536165-2 (Version None)
Quarter: 2011Q2

REPORT INFORMATION
  Report Type: 
  Country: None (occurrence: None)
  Receive Date: 20110609
  Receipt Date: 20110603
  Transmission Date: 20111010
  Serious: Yes (Death)
  Sender: FDA-Public Use
  Company Number: JP-GENZYME-THYM-1002513

PATIENT
  Age: 85 Year
  Sex: Male
  Weight: 52.6 kg

DRUGS (1)
  1. THYMOGLOBULIN [Suspect]
     Indication: APLASTIC ANAEMIA
     Dosage: 3 MG/KG, QD
     Route: 042
     Dates: start: 20110524, end: 20110527

REACTIONS (1)
  - PULMONARY HAEMORRHAGE [None]
